FAERS Safety Report 18277608 (Version 1)
Quarter: 2020Q3

REPORT INFORMATION
  Report Type: Spontaneous
  Country: FR (occurrence: FR)
  Receive Date: 20200917
  Receipt Date: 20200917
  Transmission Date: 20201103
  Serious: Yes (Life-Threatening, Hospitalization)
  Sender: FDA-Public Use
  Company Number: FR-TEVA-2020-FR-1827457

PATIENT
  Age: 67 Year
  Sex: Male
  Weight: 75 kg

DRUGS (10)
  1. INSPRA [Suspect]
     Active Substance: EPLERENONE
     Indication: PRODUCT USED FOR UNKNOWN INDICATION
     Route: 048
     Dates: end: 202007
  2. PAROXETINE (CHLORHYDRATE DE) ANHYDRE [Suspect]
     Active Substance: PAROXETINE
     Indication: PRODUCT USED FOR UNKNOWN INDICATION
     Route: 048
  3. GLUCIDION [Concomitant]
     Active Substance: GLUCOSE, LIQUID\POTASSIUM CHLORIDE\SODIUM CHLORIDE
  4. LOVENOX [Concomitant]
     Active Substance: ENOXAPARIN SODIUM
  5. RENUTRYL 500, EMULSION BUVABLE EN BOITE [Concomitant]
     Dosage: DRINKABLE EMULSION
  6. KEPPRA [Suspect]
     Active Substance: LEVETIRACETAM
     Indication: PRODUCT USED FOR UNKNOWN INDICATION
     Route: 048
  7. DIFFU K, GELULE [Concomitant]
     Active Substance: POTASSIUM CHLORIDE
  8. ATORVASTATINE ALMUS 40 MG, COMPRIME PELLICULE [Suspect]
     Active Substance: ATORVASTATIN
     Indication: CEREBROVASCULAR ACCIDENT PROPHYLAXIS
     Dosage: UNIT DOSE 1DF
     Route: 048
     Dates: start: 20191215, end: 20200722
  9. AMLODIPINE [Concomitant]
     Active Substance: AMLODIPINE BESYLATE
  10. KARDEGIC [Concomitant]
     Active Substance: ASPIRIN DL-LYSINE
     Dosage: IN SACHET.

REACTIONS (2)
  - Hypokalaemia [Recovered/Resolved]
  - Diarrhoea [Recovered/Resolved]

NARRATIVE: CASE EVENT DATE: 201912
